FAERS Safety Report 14373871 (Version 1)
Quarter: 2018Q1

REPORT INFORMATION
  Report Type: Spontaneous
  Country: FR (occurrence: FR)
  Receive Date: 20180110
  Receipt Date: 20180110
  Transmission Date: 20180509
  Serious: Yes (Death, Hospitalization, Other)
  Sender: FDA-Public Use
  Company Number: FR-AUROBINDO-AUR-APL-2018-001314

PATIENT
  Age: 42 Year
  Sex: Male

DRUGS (23)
  1. QUETIAPINE. [Suspect]
     Active Substance: QUETIAPINE
     Indication: PRODUCT USED FOR UNKNOWN INDICATION
     Dosage: 600 MG, ONCE A DAY
     Route: 048
     Dates: start: 20151210, end: 20160128
  2. XEROQUEL [Suspect]
     Active Substance: QUETIAPINE FUMARATE
     Dosage: 600 MG, ONCE A DAY
     Route: 048
     Dates: start: 20160128
  3. QUETIAPINE. [Suspect]
     Active Substance: QUETIAPINE
     Dosage: 100 MG, ONCE A DAY
     Route: 048
     Dates: start: 20151210, end: 20160128
  4. QUETIAPINE. [Suspect]
     Active Substance: QUETIAPINE
     Dosage: 200 MG, ONCE A DAY
     Route: 048
     Dates: start: 20151215
  5. XEROQUEL [Suspect]
     Active Substance: QUETIAPINE FUMARATE
     Dosage: 400 MG, ONCE A DAY
     Route: 048
     Dates: start: 20151218
  6. XEROQUEL [Suspect]
     Active Substance: QUETIAPINE FUMARATE
     Dosage: 450 MG, ONCE A DAY
     Route: 048
     Dates: start: 20151228
  7. METFORMIN [Suspect]
     Active Substance: METFORMIN HYDROCHLORIDE
     Indication: DIABETES MELLITUS
     Dosage: 500 MG, 3 TIMES A DAY
     Route: 048
     Dates: start: 20151201, end: 20160128
  8. ABILIFY [Suspect]
     Active Substance: ARIPIPRAZOLE
     Indication: PRODUCT USED FOR UNKNOWN INDICATION
     Dosage: 20 MG, ONCE A DAY
     Route: 048
     Dates: start: 20150112, end: 20160113
  9. IMOVANE [Suspect]
     Active Substance: ZOPICLONE
     Indication: INSOMNIA
     Dosage: 7.5 MG, ONCE A DAY
     Route: 048
     Dates: start: 20151201, end: 20160127
  10. PARKINANE [Suspect]
     Active Substance: TRIHEXYPHENIDYL HYDROCHLORIDE
     Indication: EXTRAPYRAMIDAL DISORDER
     Dosage: 5 MG, 3 TIMES A DAY
     Route: 048
     Dates: start: 20160118, end: 20160127
  11. ZOPICLONE TABLET [Suspect]
     Active Substance: ZOPICLONE
     Indication: INSOMNIA
     Dosage: 7.5 MG, ONCE A DAY
     Route: 048
     Dates: start: 20151201, end: 20160127
  12. LOXAPAC                            /00401801/ [Suspect]
     Active Substance: LOXAPINE
     Dosage: 180 MG, ONCE A DAY
     Route: 065
     Dates: end: 20160128
  13. STAGID [Suspect]
     Active Substance: METFORMIN PAMOATE
     Indication: DIABETES MELLITUS
     Dosage: 500 MG, 3 TIMES A DAY
     Route: 048
     Dates: start: 20151201, end: 20160128
  14. XEROQUEL [Suspect]
     Active Substance: QUETIAPINE FUMARATE
     Indication: PRODUCT USED FOR UNKNOWN INDICATION
     Dosage: 600 MG, QD
     Route: 048
     Dates: start: 20151210, end: 20160128
  15. LOXAPAC                            /00401801/ [Suspect]
     Active Substance: LOXAPINE
     Indication: PRODUCT USED FOR UNKNOWN INDICATION
     Dosage: 1 DF, PRN
     Route: 048
     Dates: start: 20151201, end: 20160128
  16. SULFARLEM [Suspect]
     Active Substance: ANETHOLTRITHION
     Indication: APTYALISM
     Dosage: UNK UNK, PRN
     Route: 048
     Dates: start: 20151228
  17. LAROXYL [Suspect]
     Active Substance: AMITRIPTYLINE HYDROCHLORIDE
     Indication: DEPRESSION
     Dosage: 75 MG, ONCE A DAY
     Route: 048
     Dates: start: 20151230, end: 20160127
  18. QUETIAPINE. [Suspect]
     Active Substance: QUETIAPINE
     Dosage: 450 MG, ONCE A DAY
     Route: 048
     Dates: start: 20151228
  19. QUETIAPINE. [Suspect]
     Active Substance: QUETIAPINE
     Dosage: 600 MG, ONCE A DAY
     Route: 048
     Dates: start: 20160128
  20. QUETIAPINE. [Suspect]
     Active Substance: QUETIAPINE
     Dosage: 400 MG, ONCE A DAY
     Route: 048
     Dates: start: 20151218
  21. XEROQUEL [Suspect]
     Active Substance: QUETIAPINE FUMARATE
     Dosage: 100 MG, ONCE A DAY
     Route: 048
     Dates: start: 20151215
  22. XEROQUEL [Suspect]
     Active Substance: QUETIAPINE FUMARATE
     Dosage: 200 MG, ONCE A DAY
     Route: 048
     Dates: start: 20151215
  23. ABILIFY [Suspect]
     Active Substance: ARIPIPRAZOLE
     Dosage: 30 MG, ONCE A DAY
     Route: 048
     Dates: start: 20160114, end: 20160128

REACTIONS (2)
  - Completed suicide [Fatal]
  - Faecaloma [Fatal]

NARRATIVE: CASE EVENT DATE: 20160128
